FAERS Safety Report 4392756-1 (Version None)
Quarter: 2004Q3

REPORT INFORMATION
  Report Type: 
  Country: None (occurrence: None)
  Receive Date: 20040706
  Receipt Date: 20040622
  Transmission Date: 20050211
  Serious: No
  Sender: FDA-Public Use
  Company Number: 2004UW09197

PATIENT

DRUGS (5)
  1. CRESTOR [Suspect]
     Indication: BLOOD CHOLESTEROL INCREASED
     Dosage: 10 MG DAILY PO
     Route: 048
     Dates: start: 20040106, end: 20040406
  2. PLAVIX [Concomitant]
  3. SYNTHROID [Concomitant]
  4. LASIX [Concomitant]
  5. LISINOPRIL [Concomitant]

REACTIONS (1)
  - HAEMATURIA [None]
